FAERS Safety Report 15390308 (Version 2)
Quarter: 2018Q4

REPORT INFORMATION
  Report Type: Report from Study
  Country: IT (occurrence: IT)
  Receive Date: 20180917
  Receipt Date: 20181023
  Transmission Date: 20190204
  Serious: Yes (Death)
  Sender: FDA-Public Use
  Company Number: PHHY2018IT098737

PATIENT
  Age: 67 Year
  Sex: Male
  Weight: 51 kg

DRUGS (3)
  1. CITARABIN [Concomitant]
     Active Substance: CYTARABINE
     Indication: ACUTE MYELOID LEUKAEMIA
     Dosage: UNK
     Route: 065
     Dates: start: 20180716, end: 20180806
  2. PKC412 [Suspect]
     Active Substance: MIDOSTAURIN
     Indication: ACUTE MYELOID LEUKAEMIA
     Dosage: 100 MG, QD
     Route: 048
     Dates: start: 20180724, end: 20180806
  3. DAUNORUBICIN [Concomitant]
     Active Substance: DAUNORUBICIN
     Indication: ACUTE MYELOID LEUKAEMIA
     Dosage: UNK
     Route: 065
     Dates: start: 20180716, end: 20180806

REACTIONS (4)
  - Pneumonia [Fatal]
  - Atrial fibrillation [Fatal]
  - Sepsis [Fatal]
  - Pyrexia [Fatal]

NARRATIVE: CASE EVENT DATE: 20180727
